FAERS Safety Report 7570222-X (Version None)
Quarter: 2011Q2

REPORT INFORMATION
  Report Type: 
  Country: None (occurrence: None)
  Receive Date: 20110624
  Receipt Date: 20110623
  Transmission Date: 20111010
  Serious: Yes (Other)
  Sender: FDA-Public Use
  Company Number: US-TEVA-287630USA

PATIENT

DRUGS (1)
  1. TRETINOIN [Suspect]
     Route: 048

REACTIONS (1)
  - ILEUS [None]
